FAERS Safety Report 24324374 (Version 2)
Quarter: 2024Q3

REPORT INFORMATION
  Report Type: Spontaneous
  Country: PT (occurrence: PT)
  Receive Date: 20240916
  Receipt Date: 20240926
  Transmission Date: 20241017
  Serious: Yes (Other)
  Sender: FRESENIUS KABI
  Company Number: None

PATIENT
  Age: 54 Year
  Sex: Female

DRUGS (3)
  1. TYENNE [Suspect]
     Active Substance: TOCILIZUMAB-AAZG
     Indication: Rheumatoid arthritis
     Dosage: 2ND INFUSION?FORM OF ADMIN - CONCENTRATE FOR SOLUTION FOR INFUSION
     Route: 042
     Dates: end: 20240406
  2. TYENNE [Suspect]
     Active Substance: TOCILIZUMAB-AAZG
     Dosage: 1ST INFUSION: 2 AMPOULES?FORM OF ADMIN - CONCENTRATE FOR SOLUTION FOR INFUSION
     Route: 042
     Dates: start: 20240307, end: 20240307
  3. TYENNE [Suspect]
     Active Substance: TOCILIZUMAB-AAZG
     Dosage: 1ST INFUSION: 1 AMPOULE?FORM OF ADMIN - CONCENTRATE FOR SOLUTION FOR INFUSION
     Route: 042
     Dates: start: 20240307, end: 20240307

REACTIONS (3)
  - Cough [Recovering/Resolving]
  - Chest pain [Recovering/Resolving]
  - Urticaria [Unknown]

NARRATIVE: CASE EVENT DATE: 20240307
